FAERS Safety Report 7335295 (Version 8)
Quarter: 2012Q4

REPORT INFORMATION
  Report Type: Report from Study
  Country: NO (occurrence: NO)
  Receive Date: 20100329
  Receipt Date: 20121012
  Transmission Date: 20130627
  Serious: Yes (Hospitalization, Other)
  Sender: FDA-Public Use
  Company Number: NO-ABBOTT-10P-122-0632784-00

PATIENT
  Age: 37 Year
  Sex: Male

DRUGS (5)
  1. HUMIRA [Suspect]
     Indication: CROHN^S DISEASE
     Route: 058
     Dates: start: 20090930, end: 20100216
  2. HUMIRA [Suspect]
     Dosage: week 2
     Route: 058
  3. HUMIRA [Suspect]
     Route: 058
  4. PREDNISONE [Concomitant]
     Indication: CROHN^S DISEASE
     Dosage: Highest maintained dose
  5. BACTRIM [Concomitant]
     Indication: PNEUMOCYSTIS JIROVECI INFECTION
     Dates: start: 20110202, end: 20110216

REACTIONS (2)
  - Eosinophilia [Recovered/Resolved]
  - Interstitial lung disease [Recovered/Resolved]
